FAERS Safety Report 21437234 (Version 1)
Quarter: 2022Q4

REPORT INFORMATION
  Report Type: Report from Study
  Country: US (occurrence: US)
  Receive Date: 20221010
  Receipt Date: 20221010
  Transmission Date: 20230112
  Serious: Yes (Hospitalization)
  Sender: FDA-Public Use
  Company Number: US-ABBVIE-4144331

PATIENT
  Age: 66 Year
  Sex: Female
  Weight: 75.749 kg

DRUGS (7)
  1. VENCLEXTA [Suspect]
     Active Substance: VENETOCLAX
     Indication: Plasma cell myeloma
     Route: 048
     Dates: start: 202207, end: 20220906
  2. VENCLEXTA [Suspect]
     Active Substance: VENETOCLAX
     Indication: Plasma cell myeloma
     Route: 048
     Dates: start: 20220913
  3. Pfizer Covid19 Vaccine [Concomitant]
     Indication: COVID-19 immunisation
     Dosage: SECOND DOSE
     Route: 030
  4. Pfizer Covid19 Vaccine [Concomitant]
     Indication: COVID-19 immunisation
     Dosage: THIRD DOSE
     Route: 030
  5. Pfizer Covid19 Vaccine [Concomitant]
     Indication: COVID-19 immunisation
     Dosage: FOURTH DOSE
     Route: 030
  6. Pfizer Covid19 Vaccine [Concomitant]
     Indication: COVID-19 immunisation
     Dosage: FIFTH DOSE
     Route: 030
  7. Pfizer Covid19 Vaccine [Concomitant]
     Indication: COVID-19 immunisation
     Dosage: FIRST DOSE
     Route: 030

REACTIONS (5)
  - Femur fracture [Recovering/Resolving]
  - Off label use [Unknown]
  - Multiple allergies [Unknown]
  - Fall [Recovering/Resolving]
  - Pain [Not Recovered/Not Resolved]

NARRATIVE: CASE EVENT DATE: 20220906
